FAERS Safety Report 24541160 (Version 2)
Quarter: 2024Q4

REPORT INFORMATION
  Report Type: Spontaneous
  Country: FR (occurrence: FR)
  Receive Date: 20241023
  Receipt Date: 20241122
  Transmission Date: 20250115
  Serious: Yes (Hospitalization)
  Sender: ALCON
  Company Number: None

PATIENT

DRUGS (4)
  1. ATROPINE [Suspect]
     Active Substance: ATROPINE
     Indication: Salivary hypersecretion
     Dosage: 3 DOSAGE FORM, Q12H
     Route: 048
     Dates: start: 20240904, end: 20240904
  2. CITALOPRAM HYDROBROMIDE [Suspect]
     Active Substance: CITALOPRAM HYDROBROMIDE
     Indication: Depression
     Dosage: UNK
     Route: 048
  3. AMITRIPTYLINE HYDROCHLORIDE [Suspect]
     Active Substance: AMITRIPTYLINE HYDROCHLORIDE
     Indication: Depression
     Dosage: UNK
     Route: 048
  4. RISPERIDONE [Suspect]
     Active Substance: RISPERIDONE
     Indication: Psychotic disorder
     Dosage: UNK
     Route: 048

REACTIONS (9)
  - Ataxia [Recovering/Resolving]
  - Hyperthermia [Recovering/Resolving]
  - Sinus tachycardia [Recovering/Resolving]
  - Anticholinergic syndrome [Recovered/Resolved]
  - Agitation [Recovering/Resolving]
  - Mydriasis [Recovering/Resolving]
  - Confusional state [Recovering/Resolving]
  - Off label use [Recovered/Resolved]
  - Intentional product misuse [Recovered/Resolved]

NARRATIVE: CASE EVENT DATE: 20240904
